FAERS Safety Report 4690414-7 (Version None)
Quarter: 2005Q2

REPORT INFORMATION
  Report Type: 
  Country: None (occurrence: None)
  Receive Date: 20050615
  Receipt Date: 20050607
  Transmission Date: 20051028
  Serious: Yes (Hospitalization)
  Sender: FDA-Public Use
  Company Number: 2005UW08809

PATIENT
  Age: 41 Year
  Sex: Male
  Weight: 74.4 kg

DRUGS (13)
  1. CRESTOR [Suspect]
     Indication: BLOOD CHOLESTEROL INCREASED
     Route: 048
  2. LIPITOR [Concomitant]
  3. DILANTIN [Concomitant]
  4. TOPROL-XL [Concomitant]
     Route: 048
  5. FUROSEMIDE [Concomitant]
  6. PHENOBARBITAL [Concomitant]
  7. CITALOPRAM [Concomitant]
  8. NIASPAN [Concomitant]
  9. LISINOPRIL [Concomitant]
  10. SPIRONOLACTONE [Concomitant]
  11. ALBUTEROL [Concomitant]
  12. FORADIL [Concomitant]
  13. COMBIVENT [Concomitant]

REACTIONS (2)
  - ASCITES [None]
  - HEPATIC CIRRHOSIS [None]
